FAERS Safety Report 13327952 (Version 1)
Quarter: 2017Q1

REPORT INFORMATION
  Report Type: Spontaneous
  Country: US (occurrence: US)
  Receive Date: 20170313
  Receipt Date: 20170313
  Transmission Date: 20170428
  Serious: No
  Sender: FDA-Public Use
  Company Number: US-JNJFOC-20161216428

PATIENT
  Age: 73 Year
  Sex: Female
  Weight: 58.97 kg

DRUGS (14)
  1. ELESTRIN [Concomitant]
     Active Substance: ESTRADIOL
     Indication: OSTEOPENIA
     Dosage: SINCE 3 YEARS
     Route: 065
  2. FISH OIL OMEGA 3 [Concomitant]
     Active Substance: FISH OIL
     Indication: CARDIAC DISORDER
     Dosage: DOSE: 2 TABLETS, SINCE 10 YEARS
     Route: 065
  3. VITAMIN D [Concomitant]
     Active Substance: CHOLECALCIFEROL
     Indication: OSTEOPENIA
     Dosage: DOSE: 1 TAB, SINNCE 10 YEARS
     Route: 065
  4. MULTIVITAMINS [Concomitant]
     Active Substance: VITAMINS
     Indication: VITAMIN SUPPLEMENTATION
     Dosage: DOSE: 1 TABLET, SINCE 30 YEARS
     Route: 065
  5. WOMENS ROGAINE UNSCENTED [Suspect]
     Active Substance: MINOXIDIL
     Route: 061
  6. COZAAR [Concomitant]
     Active Substance: LOSARTAN POTASSIUM
     Indication: HYPERTENSION
     Dosage: SINCE 20 YEARS
     Route: 065
  7. ELESTRIN [Concomitant]
     Active Substance: ESTRADIOL
     Indication: HORMONE REPLACEMENT THERAPY
     Dosage: SINCE 3 YEARS
     Route: 065
  8. MULTIVITAMINS [Concomitant]
     Active Substance: VITAMINS
     Indication: ROUTINE HEALTH MAINTENANCE
     Dosage: DOSE: 1 TABLET, SINCE 30 YEARS
     Route: 065
  9. VITAMIN D [Concomitant]
     Active Substance: CHOLECALCIFEROL
     Indication: VITAMIN SUPPLEMENTATION
     Dosage: DOSE: 1 TAB, SINNCE 10 YEARS
     Route: 065
  10. FISH OIL OMEGA 3 [Concomitant]
     Active Substance: FISH OIL
     Indication: DRY EYE
     Dosage: DOSE: 2 TABLETS, SINCE 10 YEARS
     Route: 065
  11. CITRACAL PLUS D [Concomitant]
     Indication: OSTEOPENIA
     Dosage: DOSE: 1 TABLET, SINCE 20 YEARS
     Route: 065
  12. WOMENS ROGAINE UNSCENTED [Suspect]
     Active Substance: MINOXIDIL
     Indication: ALOPECIA
     Dosage: LESS THAN 1/2 CAPFUL
     Route: 061
     Dates: start: 20161209, end: 20161229
  13. LOSARTAN. [Concomitant]
     Active Substance: LOSARTAN
     Indication: HYPERTENSION
     Route: 065
  14. CITRACAL PLUS D [Concomitant]
     Indication: MINERAL SUPPLEMENTATION
     Dosage: DOSE: 1 TABLET, SINCE 20 YEARS
     Route: 065

REACTIONS (4)
  - Product use issue [Unknown]
  - Heart rate abnormal [Recovered/Resolved]
  - Heart rate irregular [Recovered/Resolved]
  - Intentional product misuse [Unknown]

NARRATIVE: CASE EVENT DATE: 20161209
